FAERS Safety Report 13190737 (Version 1)
Quarter: 2017Q1

REPORT INFORMATION
  Report Type: Spontaneous
  Country: US (occurrence: US)
  Receive Date: 20170206
  Receipt Date: 20170206
  Transmission Date: 20170428
  Serious: No
  Sender: FDA-Public Use
  Company Number: US-ALLERGAN-1648392

PATIENT
  Age: 36 Year
  Sex: Male

DRUGS (1)
  1. CONDYLOX [Suspect]
     Active Substance: PODOFILOX
     Indication: ANOGENITAL WARTS
     Dosage: 0.5 % TWICE DAILY
     Route: 061
     Dates: start: 20160208

REACTIONS (2)
  - Product odour abnormal [Unknown]
  - Drug ineffective [Not Recovered/Not Resolved]

NARRATIVE: CASE EVENT DATE: 20160208
